FAERS Safety Report 4872888-1 (Version None)
Quarter: 2006Q1

REPORT INFORMATION
  Report Type: 
  Country: None (occurrence: None)
  Receive Date: 20060105
  Receipt Date: 20041209
  Transmission Date: 20060701
  Serious: Yes (Other)
  Sender: FDA-Public Use
  Company Number: US-BRISTOL-MYERS SQUIBB COMPANY-12794228

PATIENT
  Sex: Male

DRUGS (4)
  1. SERZONE [Suspect]
     Indication: DEPRESSION
     Dates: start: 19990801, end: 20010217
  2. PROZAC [Concomitant]
  3. FAMVIR [Concomitant]
  4. CELEBREX [Concomitant]

REACTIONS (5)
  - DEPRESSION [None]
  - DIZZINESS [None]
  - HEPATIC ENZYME INCREASED [None]
  - HEPATITIS A ANTIBODY [None]
  - SLEEP APNOEA SYNDROME [None]
